FAERS Safety Report 4822975-9 (Version None)
Quarter: 2005Q4

REPORT INFORMATION
  Report Type: 
  Country: None (occurrence: None)
  Receive Date: 20051108
  Receipt Date: 20051031
  Transmission Date: 20060501
  Serious: Yes (Hospitalization)
  Sender: FDA-Public Use
  Company Number: US-JNJFOC-20051100396

PATIENT
  Age: 5 Year
  Sex: Male
  Weight: 21.8 kg

DRUGS (4)
  1. CHILDREN'S TYLENOL [Suspect]
     Route: 048
  2. CHILDREN'S TYLENOL [Suspect]
     Indication: DRUG USE FOR UNKNOWN INDICATION
     Dosage: ORAL; }24 HR {=1 WEEK
     Route: 048
  3. ACETAMINOPHEN AND HYDROCODONE BITARTRATE [Suspect]
     Route: 048
  4. ACETAMINOPHEN AND HYDROCODONE BITARTRATE [Suspect]
     Indication: DRUG USE FOR UNKNOWN INDICATION
     Dosage: ORAL; }24HR {=1WEEK
     Route: 048

REACTIONS (4)
  - IATROGENIC INJURY [None]
  - MEDICATION ERROR [None]
  - NAUSEA [None]
  - VOMITING [None]
